FAERS Safety Report 23116409 (Version 2)
Quarter: 2023Q4

REPORT INFORMATION
  Report Type: Spontaneous
  Country: US (occurrence: US)
  Receive Date: 20231027
  Receipt Date: 20231108
  Transmission Date: 20240109
  Serious: No
  Sender: FDA-Public Use
  Company Number: US-MYLANLABS-2023M1105055

PATIENT
  Sex: Female

DRUGS (1)
  1. LATANOPROST [Suspect]
     Active Substance: LATANOPROST
     Indication: Product used for unknown indication
     Dosage: UNK
     Route: 065

REACTIONS (7)
  - Eye pain [Unknown]
  - Eye irritation [Unknown]
  - Product leakage [Unknown]
  - Product packaging quantity issue [Unknown]
  - Product quality issue [Unknown]
  - Product design issue [Unknown]
  - Product delivery mechanism issue [Unknown]
